FAERS Safety Report 12857693 (Version 2)
Quarter: 2016Q4

REPORT INFORMATION
  Report Type: Spontaneous
  Country: IT (occurrence: IT)
  Receive Date: 20161018
  Receipt Date: 20161028
  Transmission Date: 20170207
  Serious: Yes (Other)
  Sender: FDA-Public Use
  Company Number: IT-TEVA-702125ACC

PATIENT
  Age: 83 Year
  Sex: Female
  Weight: 62 kg

DRUGS (5)
  1. PANTORC - TAKEDA ITALIA S.P.A. [Suspect]
     Active Substance: PANTOPRAZOLE SODIUM
     Indication: PROPHYLAXIS AGAINST GASTROINTESTINAL ULCER
     Dosage: 40 MILLIGRAM DAILY; 40 MG DAILY
     Route: 048
     Dates: start: 20160919, end: 20161004
  2. RETACRIT - HOSPIRA UK LTD [Concomitant]
     Indication: PRODUCT USED FOR UNKNOWN INDICATION
     Dosage: 12000 IU
     Route: 058
  3. ALLOPURINOLO TEVA ITALIA - TEVA ITALIA S.R.L. [Suspect]
     Active Substance: ALLOPURINOL
     Indication: HYPERURICAEMIA
     Dosage: HALF TABLET DAILY
     Route: 048
     Dates: start: 20160929, end: 20161004
  4. FERLIXIT - SANOFI S.P.A. [Suspect]
     Active Substance: SODIUM FERRIC GLUCONATE COMPLEX
     Indication: IRON DEFICIENCY ANAEMIA
     Dosage: 1 DOSAGE FORMS DAILY;
     Route: 048
     Dates: start: 20160922, end: 20161002
  5. LASIX [Concomitant]
     Active Substance: FUROSEMIDE
     Indication: PRODUCT USED FOR UNKNOWN INDICATION
     Dosage: 20 MG
     Route: 042

REACTIONS (1)
  - Erythrodermic psoriasis [Recovering/Resolving]

NARRATIVE: CASE EVENT DATE: 20161004
